FAERS Safety Report 8230074-1 (Version None)
Quarter: 2012Q1

REPORT INFORMATION
  Report Type: 
  Country: None (occurrence: None)
  Receive Date: 20120323
  Receipt Date: 20120322
  Transmission Date: 20120608
  Serious: No
  Sender: FDA-Public Use
  Company Number: US-PFIZER INC-2012075012

PATIENT
  Sex: Male
  Weight: 95.238 kg

DRUGS (2)
  1. CHANTIX [Suspect]
     Indication: SMOKING CESSATION THERAPY
     Dosage: 0.5 MG, DAILY
     Dates: start: 20110101, end: 20110101
  2. CHANTIX [Suspect]
     Dosage: UNK
     Dates: start: 20110101, end: 20110101

REACTIONS (2)
  - NAUSEA [None]
  - FEELING ABNORMAL [None]
